FAERS Safety Report 10662140 (Version 1)
Quarter: 2014Q4

REPORT INFORMATION
  Report Type: Spontaneous
  Country: GB (occurrence: None)
  Receive Date: 20141216
  Receipt Date: 20141216
  Transmission Date: 20150529
  Serious: Yes (Hospitalization)
  Sender: FDA-Public Use
  Company Number: GB-20140048

PATIENT
  Age: 37 Year
  Sex: Female
  Weight: 84.8 kg

DRUGS (1)
  1. DOTAREM [Suspect]
     Active Substance: GADOTERATE MEGLUMINE
     Indication: DIAGNOSTIC PROCEDURE
     Route: 042
     Dates: start: 20141126, end: 20141126

REACTIONS (9)
  - Hypersensitivity [None]
  - Hypotension [None]
  - Pruritus [None]
  - Nausea [None]
  - Bladder irritation [None]
  - Burning sensation [None]
  - Vomiting [None]
  - Feeling hot [None]
  - Erythema [None]

NARRATIVE: CASE EVENT DATE: 20141126
